FAERS Safety Report 21701609 (Version 1)
Quarter: 2022Q4

REPORT INFORMATION
  Report Type: Spontaneous
  Country: US (occurrence: None)
  Receive Date: 20221208
  Receipt Date: 20221208
  Transmission Date: 20230113
  Serious: Yes (Hospitalization, Other)
  Sender: FDA-Public Use
  Company Number: US-Unichem Pharmaceuticals (USA) Inc-UCM202212-001273

PATIENT
  Age: 25 Year
  Sex: Male

DRUGS (2)
  1. LAMOTRIGINE [Suspect]
     Active Substance: LAMOTRIGINE
     Indication: Bipolar II disorder
     Dosage: UNKNOWN
  2. PREDNISONE [Concomitant]
     Active Substance: PREDNISONE
     Indication: Tubulointerstitial nephritis
     Dosage: UNKNOWN
     Route: 048

REACTIONS (3)
  - Oliguria [Recovered/Resolved]
  - Tubulointerstitial nephritis [Recovered/Resolved]
  - Rash maculo-papular [Recovered/Resolved]
